FAERS Safety Report 24194627 (Version 1)
Quarter: 2024Q3

REPORT INFORMATION
  Report Type: Spontaneous
  Country: US (occurrence: US)
  Receive Date: 20240809
  Receipt Date: 20240809
  Transmission Date: 20241017
  Serious: Yes (Hospitalization)
  Sender: ORGANON
  Company Number: US-ORGANON-O2408USA000642

PATIENT
  Age: 17 Year
  Sex: Female

DRUGS (1)
  1. NEXPLANON [Suspect]
     Active Substance: ETONOGESTREL
     Indication: Contraception
     Dosage: 1 IMPLANT (68 MG EVERY 3 YEARS) (ARM)
     Route: 059
     Dates: start: 2023

REACTIONS (3)
  - Ovarian cyst [Recovered/Resolved]
  - Abdominal pain [Unknown]
  - Vomiting [Unknown]
